FAERS Safety Report 6338915-X (Version None)
Quarter: 2009Q3

REPORT INFORMATION
  Report Type: 
  Country: None (occurrence: None)
  Receive Date: 20090903
  Receipt Date: 20090629
  Transmission Date: 20100115
  Serious: No
  Sender: FDA-Public Use
  Company Number: US-BAYER-200925455NA

PATIENT
  Age: 17 Year
  Sex: Female

DRUGS (1)
  1. MIRENA [Suspect]
     Indication: CONTRACEPTION
     Dosage: CONTINUOUS
     Route: 015
     Dates: start: 20090401

REACTIONS (6)
  - ABDOMINAL PAIN LOWER [None]
  - HEADACHE [None]
  - NAUSEA [None]
  - SUPPRESSED LACTATION [None]
  - VAGINAL HAEMORRHAGE [None]
  - VOMITING [None]
